FAERS Safety Report 7633705-X (Version None)
Quarter: 2011Q3

REPORT INFORMATION
  Report Type: 
  Country: None (occurrence: None)
  Receive Date: 20110725
  Receipt Date: 20110714
  Transmission Date: 20111222
  Serious: Yes (Hospitalization, Other)
  Sender: FDA-Public Use
  Company Number: US-ASTRAZENECA-2011SE42570

PATIENT
  Age: 51 Year
  Sex: Female

DRUGS (1)
  1. NEXIUM [Suspect]
     Route: 048

REACTIONS (9)
  - INTESTINAL ADHESION LYSIS [None]
  - SCAR EXCISION [None]
  - NEOPLASM MALIGNANT [None]
  - INTESTINAL OBSTRUCTION [None]
  - PANCREATIC DUCT OBSTRUCTION [None]
  - MALAISE [None]
  - DYSPEPSIA [None]
  - DIABETES MELLITUS [None]
  - PANCREATIC OPERATION [None]
